FAERS Safety Report 4802203-0 (Version None)
Quarter: 2005Q4

REPORT INFORMATION
  Report Type: 
  Country: None (occurrence: None)
  Receive Date: 20051012
  Receipt Date: 20050928
  Transmission Date: 20060501
  Serious: Yes (Hospitalization)
  Sender: FDA-Public Use
  Company Number: 2005BI018296

PATIENT
  Age: 51 Year
  Sex: Male

DRUGS (3)
  1. AVONEX [Suspect]
     Indication: MULTIPLE SCLEROSIS
     Dosage: 30 UG;QW;IM
     Route: 030
     Dates: start: 19961001
  2. AVONEX [Suspect]
     Indication: MULTIPLE SCLEROSIS
     Dosage: 30 UG;QW;IM
     Route: 030
  3. PREDNISOLONE [Concomitant]

REACTIONS (7)
  - DEVICE FAILURE [None]
  - HIP ARTHROPLASTY [None]
  - LUNG NEOPLASM MALIGNANT [None]
  - MEDICAL DEVICE COMPLICATION [None]
  - NECROSIS [None]
  - OVERDOSE [None]
  - THROMBOSIS [None]
